FAERS Safety Report 5750406-3 (Version None)
Quarter: 2008Q2

REPORT INFORMATION
  Report Type: 
  Country: None (occurrence: None)
  Receive Date: 20080523
  Receipt Date: 20080523
  Transmission Date: 20081010
  Serious: Yes (Life-Threatening, Disabling)
  Sender: FDA-Public Use
  Company Number: None

PATIENT
  Sex: Male

DRUGS (6)
  1. FENTANYL-25 [Suspect]
     Indication: ANALGESIA
     Dosage: 1 PATCH EVERY 72 HRS
     Dates: start: 20080124
  2. FENTANYL-25 [Suspect]
     Indication: ANALGESIA
     Dosage: 1 PATCH EVERY 72 HRS
     Dates: start: 20080127
  3. FENTANYL-25 [Suspect]
     Indication: ANALGESIA
     Dosage: 1 PATCH EVERY 72 HRS
     Dates: start: 20080130
  4. FENTANYL-25 [Suspect]
     Indication: ANALGESIA
     Dosage: 1 PATCH EVERY 72 HRS
     Dates: start: 20080205
  5. FENTANYL-25 [Suspect]
     Indication: ANALGESIA
     Dosage: 1 PATCH EVERY 72 HRS
     Dates: start: 20080208
  6. FENTANYL-25 [Suspect]

REACTIONS (12)
  - APPLICATION SITE BURN [None]
  - ASTHENIA [None]
  - BLOOD PRESSURE DECREASED [None]
  - CONFUSIONAL STATE [None]
  - COUGH [None]
  - DIZZINESS [None]
  - FEELING ABNORMAL [None]
  - GAIT DISTURBANCE [None]
  - INSOMNIA [None]
  - MEDICAL DEVICE COMPLICATION [None]
  - STOMACH DISCOMFORT [None]
  - WEIGHT DECREASED [None]
